FAERS Safety Report 7873442-X (Version None)
Quarter: 2011Q4

REPORT INFORMATION
  Report Type: 
  Country: None (occurrence: None)
  Receive Date: 20111030
  Receipt Date: 20110504
  Transmission Date: 20120403
  Serious: No
  Sender: FDA-Public Use
  Company Number: US-AMGEN-USASP2011023195

PATIENT
  Age: 58 Year
  Sex: Female

DRUGS (2)
  1. METHOTREXATE [Concomitant]
     Dates: start: 20101229
  2. ENBREL [Suspect]
     Indication: RHEUMATOID ARTHRITIS
     Dates: start: 20110421

REACTIONS (6)
  - CHILLS [None]
  - INJECTION SITE WARMTH [None]
  - PYREXIA [None]
  - MALAISE [None]
  - COUGH [None]
  - INJECTION SITE ERYTHEMA [None]
